FAERS Safety Report 6758431-0 (Version None)
Quarter: 2010Q2

REPORT INFORMATION
  Report Type: 
  Country: None (occurrence: None)
  Receive Date: 20100607
  Receipt Date: 20100528
  Transmission Date: 20101027
  Serious: Yes (Hospitalization)
  Sender: FDA-Public Use
  Company Number: A0783316A

PATIENT
  Age: 67 Year
  Sex: Male
  Weight: 130.9 kg

DRUGS (10)
  1. AVANDIA [Suspect]
     Dosage: 8MG PER DAY
     Route: 048
     Dates: start: 19990101, end: 20060101
  2. GLIPIZIDE [Concomitant]
  3. VICODIN [Concomitant]
  4. FLOMAX [Concomitant]
  5. CLONIDINE [Concomitant]
  6. ACCUPRIL [Concomitant]
  7. HCTZ [Concomitant]
  8. LOVASTATIN [Concomitant]
  9. ADVAIR DISKUS 100/50 [Concomitant]
  10. ALBUTEROL [Concomitant]

REACTIONS (3)
  - CARDIAC FAILURE CONGESTIVE [None]
  - PULMONARY EMBOLISM [None]
  - PULMONARY THROMBOSIS [None]
